FAERS Safety Report 4342690-8 (Version None)
Quarter: 2004Q1

REPORT INFORMATION
  Report Type: 
  Country: None (occurrence: None)
  Receive Date: 20040213
  Receipt Date: 20031103
  Transmission Date: 20041129
  Serious: Yes (Hospitalization)
  Sender: FDA-Public Use
  Company Number: 350825

PATIENT
  Age: 43 Year
  Sex: Male
  Weight: 45.4 kg

DRUGS (2)
  1. PEGASYS [Suspect]
     Indication: HEPATITIS C VIRUS
     Dosage: 180 MCG 1 PER WEEK SUBCUTANEOUS
     Route: 058
     Dates: start: 20030224
  2. RIBAVIRIN [Suspect]
     Indication: HEPATITIS C VIRUS
     Dosage: 400 MG 2 PER DAY ORAL
     Route: 048
     Dates: start: 20030224

REACTIONS (4)
  - FEBRILE NEUTROPENIA [None]
  - LOOSE STOOLS [None]
  - MALAISE [None]
  - PYREXIA [None]
